FAERS Safety Report 8593750-7 (Version None)
Quarter: 2012Q3

REPORT INFORMATION
  Report Type: 
  Country: None (occurrence: None)
  Receive Date: 20120814
  Receipt Date: 20120803
  Transmission Date: 20120928
  Serious: Yes (Death, Hospitalization)
  Sender: FDA-Public Use
  Company Number: US-ACTELION-A-NJ2012-66223

PATIENT
  Age: 63 Year
  Sex: Male

DRUGS (2)
  1. TRACLEER [Suspect]
     Indication: PULMONARY ARTERIAL HYPERTENSION
     Dosage: UNK
     Route: 048
  2. ASPIRIN [Concomitant]

REACTIONS (7)
  - DEATH [None]
  - RENAL FAILURE [None]
  - DYSPNOEA [None]
  - CONCOMITANT DISEASE AGGRAVATED [None]
  - ASCITES [None]
  - DIALYSIS [None]
  - ARTERIOVENOUS SHUNT OPERATION [None]
